FAERS Safety Report 9749050 (Version 1)
Quarter: 2013Q4

REPORT INFORMATION
  Report Type: Spontaneous
  Country: US (occurrence: US)
  Receive Date: 20131212
  Receipt Date: 20131212
  Transmission Date: 20140711
  Serious: No
  Sender: FDA-Public Use
  Company Number: US-INCYTE CORPORATION-2013IN002178

PATIENT
  Sex: Female

DRUGS (10)
  1. JAKAFI [Suspect]
     Indication: MYELOFIBROSIS
     Dosage: 10 MG, BID
     Route: 048
     Dates: start: 201210
  2. AMLODIPINE [Concomitant]
  3. POTASSIUM SUPPLEMENT [Concomitant]
  4. BENAZEPRIL [Concomitant]
  5. SYNTHROID [Concomitant]
  6. WARFARIN [Concomitant]
  7. ADVAIR [Concomitant]
  8. IRON [Concomitant]
  9. CENTRUM SILVER [Concomitant]
  10. CALTRATE + D [Concomitant]

REACTIONS (1)
  - Urine uric acid increased [Unknown]
